FAERS Safety Report 25962780 (Version 1)
Quarter: 2025Q4

REPORT INFORMATION
  Report Type: Spontaneous
  Country: US (occurrence: None)
  Receive Date: 20251025
  Receipt Date: 20251025
  Transmission Date: 20260118
  Serious: Yes (Hospitalization)
  Sender: FDA-CTU
  Company Number: None

PATIENT
  Age: 65 Year
  Sex: Female

DRUGS (1)
  1. TREMFYA [Suspect]
     Active Substance: GUSELKUMAB
     Dosage: 100MG EVERY 8 WEEKS  SUBCUTANEOUS?
     Route: 058

REACTIONS (3)
  - Urinary tract infection [None]
  - Psoriatic arthropathy [None]
  - Arthralgia [None]
